FAERS Safety Report 14273456 (Version 6)
Quarter: 2018Q2

REPORT INFORMATION
  Report Type: Spontaneous
  Country: DE (occurrence: DE)
  Receive Date: 20171211
  Receipt Date: 20180409
  Transmission Date: 20180711
  Serious: Yes (Hospitalization, Other)
  Sender: FDA-Public Use
  Company Number: DE-OTSUKA-2015_014188

PATIENT
  Age: 77 Year
  Sex: Female

DRUGS (37)
  1. METAMIZOL [Suspect]
     Active Substance: METAMIZOLE SODIUM
     Dosage: 500 MG, QD
     Route: 048
     Dates: start: 20140522, end: 20140522
  2. METAMIZOL [Suspect]
     Active Substance: METAMIZOLE SODIUM
     Dosage: 1500 MG, UNK
     Route: 048
  3. MIRTAZAPIN [Interacting]
     Active Substance: MIRTAZAPINE
     Indication: PRODUCT USED FOR UNKNOWN INDICATION
     Dosage: 30 MG, UNK
     Route: 048
  4. PANTOPRAZOLE [Concomitant]
     Active Substance: PANTOPRAZOLE
     Indication: PRODUCT USED FOR UNKNOWN INDICATION
     Dosage: 40 MG, QD
     Route: 048
  5. FORMOTEROL [Concomitant]
     Active Substance: FORMOTEROL
     Indication: PRODUCT USED FOR UNKNOWN INDICATION
     Dosage: 1 DF, QD
     Route: 065
     Dates: start: 20131201
  6. FOLSAEURE [Concomitant]
     Active Substance: FOLIC ACID
     Indication: PRODUCT USED FOR UNKNOWN INDICATION
     Dosage: 5 MG, QD
     Route: 048
     Dates: start: 20140502
  7. METAMIZOL [Suspect]
     Active Substance: METAMIZOLE SODIUM
     Dosage: 500 MG, QD
     Route: 048
     Dates: start: 20140526, end: 20140528
  8. DUROGESIC [Interacting]
     Active Substance: FENTANYL
     Indication: PRODUCT USED FOR UNKNOWN INDICATION
     Dosage: 75 ?G, UNK (75 UG, Q72H)
     Route: 062
     Dates: start: 20120101
  9. AMLODIPINE [Concomitant]
     Active Substance: AMLODIPINE BESYLATE
     Indication: PRODUCT USED FOR UNKNOWN INDICATION
     Dosage: 10 MG, QD
     Route: 048
     Dates: start: 20110101
  10. ABILIFY [Suspect]
     Active Substance: ARIPIPRAZOLE
     Indication: PRODUCT USED FOR UNKNOWN INDICATION
     Dosage: 5 MG, UNK
     Route: 048
     Dates: start: 20140515, end: 20140520
  11. ABILIFY [Interacting]
     Active Substance: ARIPIPRAZOLE
     Dosage: 2.5 MG, UNK
     Route: 048
     Dates: start: 20140508, end: 20140514
  12. METAMIZOL [Suspect]
     Active Substance: METAMIZOLE SODIUM
     Dosage: 1000 MG, QD (500-1000 MG)
     Route: 048
     Dates: start: 20140502, end: 20140517
  13. PIPAMPERON [Interacting]
     Active Substance: PIPAMPERONE HYDROCHLORIDE
     Indication: PRODUCT USED FOR UNKNOWN INDICATION
     Dosage: 60 MG, QD
     Route: 048
     Dates: start: 20140515, end: 20140524
  14. PIPAMPERON [Interacting]
     Active Substance: PIPAMPERONE HYDROCHLORIDE
     Dosage: 40 MG, QD
     Route: 048
     Dates: start: 20140510, end: 20140513
  15. PIPAMPERON [Interacting]
     Active Substance: PIPAMPERONE HYDROCHLORIDE
     Dosage: 120 MG, QD
     Route: 048
     Dates: start: 20140527, end: 20140527
  16. FENTANYL. [Concomitant]
     Active Substance: FENTANYL
     Indication: PRODUCT USED FOR UNKNOWN INDICATION
     Dosage: 1 DF, UNK (1 DF= 75?G/H EVERY 3DAYS)
     Route: 065
     Dates: start: 2012
  17. CLOPIDOGREL [Concomitant]
     Active Substance: CLOPIDOGREL BISULFATE
     Indication: PRODUCT USED FOR UNKNOWN INDICATION
     Dosage: 75 MG, QD
     Route: 048
     Dates: start: 20110101
  18. METAMIZOL [Suspect]
     Active Substance: METAMIZOLE SODIUM
     Indication: PRODUCT USED FOR UNKNOWN INDICATION
     Dosage: 2000 MG, QD
     Route: 048
     Dates: start: 20140518, end: 20140519
  19. METAMIZOL [Suspect]
     Active Substance: METAMIZOLE SODIUM
     Dosage: 1000 MG, QD
     Route: 048
     Dates: start: 20140523, end: 20140525
  20. LISINOPRIL. [Interacting]
     Active Substance: LISINOPRIL
     Indication: PRODUCT USED FOR UNKNOWN INDICATION
     Dosage: 5 MG, UNK
     Route: 048
     Dates: start: 20140520, end: 20140520
  21. OPHTALMIN N [Concomitant]
     Indication: PRODUCT USED FOR UNKNOWN INDICATION
     Dosage: 1 DF, UNK (1DF=2UNITS, 2X1 SINCE WEEKS)
     Route: 065
  22. RESONIUM [Concomitant]
     Active Substance: SODIUM POLYSTYRENE SULFONATE
     Indication: PRODUCT USED FOR UNKNOWN INDICATION
     Dosage: UNK (UNSPECIFIED, 2 TABLE SPOON)
     Route: 048
     Dates: start: 20140528
  23. METAMIZOL [Suspect]
     Active Substance: METAMIZOLE SODIUM
     Dosage: 500 MG, QD
     Route: 048
     Dates: start: 20140530
  24. PIPAMPERON [Interacting]
     Active Substance: PIPAMPERONE HYDROCHLORIDE
     Dosage: 80 MG, QD
     Route: 048
     Dates: start: 20140525, end: 20140526
  25. PIPAMPERON [Interacting]
     Active Substance: PIPAMPERONE HYDROCHLORIDE
     Dosage: 20 MG, QD
     Route: 048
     Dates: start: 20140528, end: 20140528
  26. LISINOPRIL. [Interacting]
     Active Substance: LISINOPRIL
     Dosage: 2.5 MG, UNK
     Route: 048
     Dates: start: 20140524
  27. DIAZEPAM. [Suspect]
     Active Substance: DIAZEPAM
     Dosage: 30 MG, QD
     Route: 030
     Dates: start: 20140526, end: 20140528
  28. STILNOX [Suspect]
     Active Substance: ZOLPIDEM TARTRATE
     Indication: PRODUCT USED FOR UNKNOWN INDICATION
     Dosage: 10 MG, QD
     Route: 048
     Dates: start: 20140527
  29. METAMIZOL [Suspect]
     Active Substance: METAMIZOLE SODIUM
     Dosage: 1000 MG, QD
     Route: 048
     Dates: start: 20140520, end: 20140521
  30. INSULIN [Concomitant]
     Active Substance: INSULIN NOS
     Indication: PRODUCT USED FOR UNKNOWN INDICATION
     Dosage: 60 IU, QD
     Route: 058
  31. PIPAMPERON [Interacting]
     Active Substance: PIPAMPERONE HYDROCHLORIDE
     Dosage: 20 MG, QD
     Route: 048
     Dates: start: 20140508, end: 20140509
  32. VENLAFAXIN [Concomitant]
     Active Substance: VENLAFAXINE HYDROCHLORIDE
     Indication: PRODUCT USED FOR UNKNOWN INDICATION
     Dosage: 30 MG, UNK
     Route: 048
     Dates: start: 2012
  33. SIMVASTATIN. [Concomitant]
     Active Substance: SIMVASTATIN
     Indication: PRODUCT USED FOR UNKNOWN INDICATION
     Dosage: 10 MG, QD
     Route: 048
     Dates: start: 20140201
  34. PREDNISOLON [Concomitant]
     Active Substance: PREDNISOLONE
     Indication: PRODUCT USED FOR UNKNOWN INDICATION
     Dosage: 60 MG, UNK
     Route: 048
  35. METAMIZOL [Suspect]
     Active Substance: METAMIZOLE SODIUM
     Dosage: 1500 MG, UNK (500-1000 MG)
     Route: 048
     Dates: start: 20140517, end: 20140517
  36. DIAZEPAM. [Suspect]
     Active Substance: DIAZEPAM
     Indication: RESTLESSNESS
     Dosage: 10 MG, UNK
     Route: 048
     Dates: start: 20140526, end: 20140528
  37. MACROGOL [Concomitant]
     Active Substance: POLYETHYLENE GLYCOLS
     Indication: PRODUCT USED FOR UNKNOWN INDICATION
     Dosage: 1 DF, QD
     Route: 048
     Dates: start: 20110101

REACTIONS (14)
  - Myoclonus [Unknown]
  - Syncope [Recovered/Resolved]
  - Facial nerve disorder [Unknown]
  - Diarrhoea [Unknown]
  - Loss of consciousness [Recovered/Resolved]
  - Dysarthria [Unknown]
  - Drug interaction [Unknown]
  - Left ventricular hypertrophy [Unknown]
  - Hypokalaemia [Unknown]
  - Rash [Unknown]
  - Prescribed underdose [Unknown]
  - Pancytopenia [Recovered/Resolved]
  - Fall [Unknown]
  - Restlessness [Unknown]

NARRATIVE: CASE EVENT DATE: 20140519
